FAERS Safety Report 22055263 (Version 1)
Quarter: 2023Q1

REPORT INFORMATION
  Report Type: Spontaneous
  Country: RU (occurrence: None)
  Receive Date: 20230302
  Receipt Date: 20230302
  Transmission Date: 20230418
  Serious: Yes (Other)
  Sender: FDA-Public Use
  Company Number: RU-ROCHE-3298006

PATIENT
  Sex: Female

DRUGS (6)
  1. TOCILIZUMAB [Suspect]
     Active Substance: TOCILIZUMAB
     Indication: Product used for unknown indication
     Dosage: STRENGTH: 8MG/KG
     Route: 042
     Dates: start: 2017, end: 2018
  2. TOCILIZUMAB [Suspect]
     Active Substance: TOCILIZUMAB
     Dosage: STRENGTH: 8MG/KG
     Route: 042
     Dates: start: 2018, end: 2020
  3. TOCILIZUMAB [Suspect]
     Active Substance: TOCILIZUMAB
     Indication: Product used for unknown indication
     Route: 058
     Dates: start: 2020, end: 2021
  4. METHOTREXATE [Concomitant]
     Active Substance: METHOTREXATE
  5. METHYLPREDNISOLONE [Concomitant]
     Active Substance: METHYLPREDNISOLONE
  6. OLOKIZUMAB [Concomitant]
     Active Substance: OLOKIZUMAB

REACTIONS (6)
  - Neutropenia [Unknown]
  - Leukopenia [Unknown]
  - Psychomotor hyperactivity [Unknown]
  - Drug intolerance [Unknown]
  - Alopecia [Unknown]
  - Dyspepsia [Unknown]
